FAERS Safety Report 8963828 (Version 2)
Quarter: 2013Q2

REPORT INFORMATION
  Report Type: Report from Study
  Country: TN (occurrence: TN)
  Receive Date: 20121214
  Receipt Date: 20130523
  Transmission Date: 20140414
  Serious: Yes (Death, Hospitalization)
  Sender: FDA-Public Use
  Company Number: PHHY2012TN114824

PATIENT
  Sex: Male

DRUGS (8)
  1. EXJADE [Suspect]
     Indication: TRANSFUSION
     Dosage: 750 MG, UNK
     Dates: start: 20121116, end: 20121208
  2. EXJADE [Suspect]
     Indication: HAEMOSIDEROSIS
  3. VANCOMYCINE [Concomitant]
     Indication: APLASTIC ANAEMIA
     Dosage: 310 MG, UNK
     Dates: start: 20121201, end: 20121203
  4. FORTIN [Concomitant]
     Dosage: 600 MG, UNK
     Dates: start: 20121201, end: 20121204
  5. FLAGYL [Concomitant]
     Dosage: 255 MG, UNK
     Dates: start: 20121201, end: 20121208
  6. AMIKLIN [Concomitant]
     Dosage: 255 MG, UNK
     Dates: start: 20121201, end: 20121208
  7. MOPRAL [Concomitant]
     Dosage: 35 MG, UNK
     Dates: start: 20121201, end: 20121208
  8. PARACETAMOL [Concomitant]
     Dosage: 250 MG, UNK
     Dates: start: 20121201, end: 20121208

REACTIONS (3)
  - Cerebral haemorrhage [Fatal]
  - Cardiac arrest [Unknown]
  - Serum ferritin increased [Unknown]
